FAERS Safety Report 7127671-3 (Version None)
Quarter: 2010Q4

REPORT INFORMATION
  Report Type: 
  Country: None (occurrence: None)
  Receive Date: 20101130
  Receipt Date: 20101122
  Transmission Date: 20110411
  Serious: No
  Sender: FDA-Public Use
  Company Number: US-BIOGENIDEC-2010BI012225

PATIENT
  Sex: Female

DRUGS (1)
  1. TYSABRI [Suspect]
     Indication: MULTIPLE SCLEROSIS
     Route: 042
     Dates: start: 20090312, end: 20100101

REACTIONS (5)
  - ANXIETY [None]
  - ASTHENIA [None]
  - FATIGUE [None]
  - MENTAL IMPAIRMENT [None]
  - TRIGEMINAL NEURALGIA [None]
